FAERS Safety Report 6738414-7 (Version None)
Quarter: 2010Q2

REPORT INFORMATION
  Report Type: 
  Country: None (occurrence: None)
  Receive Date: 20100524
  Receipt Date: 20100514
  Transmission Date: 20101027
  Serious: Yes (Hospitalization, Other)
  Sender: FDA-Public Use
  Company Number: US-ALEXION-A201000272

PATIENT
  Sex: Male

DRUGS (6)
  1. SOLIRIS [Suspect]
     Indication: PAROXYSMAL NOCTURNAL HAEMOGLOBINURIA
     Dosage: 600 MG, QW
     Route: 042
     Dates: start: 20090918, end: 20091001
  2. SOLIRIS [Suspect]
     Dosage: 900 MG, Q2W
     Route: 042
     Dates: start: 20091016, end: 20091127
  3. SOLIRIS [Suspect]
     Dosage: 600 MG, QW
     Route: 042
     Dates: start: 20091216, end: 20100115
  4. SOLIRIS [Suspect]
     Dosage: 900 MG, Q2W
     Route: 042
     Dates: start: 20100122, end: 20100219
  5. LISINOPRIL [Concomitant]
     Dosage: 20 MG, QD
  6. NORVASC [Concomitant]
     Dosage: 5 MG, QD

REACTIONS (4)
  - ACUTE MYELOID LEUKAEMIA [None]
  - CELLULITIS [None]
  - DEVICE RELATED INFECTION [None]
  - PNEUMONIA [None]
